FAERS Safety Report 18420062 (Version 8)
Quarter: 2025Q4

REPORT INFORMATION
  Report Type: Report from Study
  Country: CA (occurrence: CA)
  Receive Date: 20201023
  Receipt Date: 20251216
  Transmission Date: 20260118
  Serious: Yes (Hospitalization, Other)
  Sender: ABBVIE
  Company Number: CA-ABBVIE-20K-028-3568597-00

PATIENT
  Age: 64 Year
  Sex: Female

DRUGS (12)
  1. RINVOQ [Suspect]
     Active Substance: UPADACITINIB
     Indication: Rheumatoid arthritis
     Route: 048
     Dates: start: 20201015, end: 20210506
  2. RINVOQ [Suspect]
     Active Substance: UPADACITINIB
     Indication: Rheumatoid arthritis
     Dosage: LAST ADMIN DATE; 2020
     Route: 048
     Dates: start: 20200708
  3. RINVOQ [Suspect]
     Active Substance: UPADACITINIB
     Indication: Rheumatoid arthritis
     Route: 048
     Dates: start: 20210527
  4. RINVOQ [Suspect]
     Active Substance: UPADACITINIB
     Indication: Rheumatoid arthritis
     Route: 048
     Dates: end: 2021
  5. RINVOQ [Suspect]
     Active Substance: UPADACITINIB
     Indication: Rheumatoid arthritis
     Route: 048
  6. RINVOQ [Suspect]
     Active Substance: UPADACITINIB
     Indication: Rheumatoid arthritis
     Route: 048
  7. RINVOQ [Suspect]
     Active Substance: UPADACITINIB
     Indication: Rheumatoid arthritis
     Route: 048
     Dates: end: 20240905
  8. HYDROXYCHLOROQUINE [Concomitant]
     Active Substance: HYDROXYCHLOROQUINE
     Indication: Rheumatoid arthritis
     Route: 048
     Dates: start: 201911
  9. AMITRIPTYLINE [Concomitant]
     Active Substance: AMITRIPTYLINE
     Indication: Fibromyalgia
     Route: 048
  10. HYDROCHLOROTHIAZIDE\VALSARTAN [Concomitant]
     Active Substance: HYDROCHLOROTHIAZIDE\VALSARTAN
     Indication: Hypertension
     Dosage: 160/125 MG
     Route: 048
  11. DILTIAZEM [Concomitant]
     Active Substance: DILTIAZEM
     Indication: Hypertension
     Route: 048
  12. PANTOPRAZOLE [Concomitant]
     Active Substance: PANTOPRAZOLE
     Indication: Gastrooesophageal reflux disease
     Route: 048

REACTIONS (22)
  - Osteoarthritis [Recovered/Resolved]
  - Knee arthroplasty [Unknown]
  - Hip arthroplasty [Unknown]
  - Urinary tract infection [Unknown]
  - Pain [Not Recovered/Not Resolved]
  - Joint swelling [Recovered/Resolved]
  - Feeling hot [Unknown]
  - Dyspnoea [Unknown]
  - Cystitis [Unknown]
  - Arthropathy [Unknown]
  - Medical device site injury [Unknown]
  - Fall [Unknown]
  - Pain [Recovered/Resolved]
  - Cough [Unknown]
  - Nephrolithiasis [Unknown]
  - Kidney infection [Unknown]
  - Arthralgia [Unknown]
  - Lumbar vertebral fracture [Unknown]
  - Chromaturia [Unknown]
  - Dysuria [Unknown]
  - Knee arthroplasty [Unknown]
  - Knee arthroplasty [Unknown]

NARRATIVE: CASE EVENT DATE: 20200101
